FAERS Safety Report 7283221-2 (Version None)
Quarter: 2011Q1

REPORT INFORMATION
  Report Type: 
  Country: None (occurrence: None)
  Receive Date: 20110209
  Receipt Date: 20110127
  Transmission Date: 20110831
  Serious: Yes (Hospitalization)
  Sender: FDA-Public Use
  Company Number: PHHY2011NO06353

PATIENT
  Sex: Female

DRUGS (7)
  1. TENORMIN [Concomitant]
     Dosage: 100 MG, QD
  2. TENORMIN [Concomitant]
     Dosage: 25 MG, QD
  3. DIURAL [Concomitant]
     Indication: HYPERTENSION
     Dosage: 1+1+0+0
  4. CALCIGRAN FORTE [Concomitant]
     Indication: OSTEOPOROSIS
     Dosage: 1+0+1+0
  5. ACLASTA [Suspect]
     Dosage: 5 MG/100 ML ONCE PER YEAR
     Dates: start: 20100701
  6. IMOVANE [Concomitant]
     Indication: INSOMNIA
     Dosage: 0+0+0+1
  7. NORSPAN [Concomitant]
     Indication: PAIN
     Dosage: 5 MICROGRAM/HOUR EVERY FRIDAY

REACTIONS (4)
  - ANAEMIA [None]
  - DIZZINESS [None]
  - ATRIAL FIBRILLATION [None]
  - BRADYCARDIA [None]
